FAERS Safety Report 7582293-5 (Version None)
Quarter: 2011Q2

REPORT INFORMATION
  Report Type: 
  Country: None (occurrence: None)
  Receive Date: 20110630
  Receipt Date: 20110523
  Transmission Date: 20111010
  Serious: Yes (Other)
  Sender: FDA-Public Use
  Company Number: US-BAYER-201030469NA

PATIENT
  Age: 17 Year
  Sex: Female
  Weight: 56.236 kg

DRUGS (11)
  1. VITAMIN TAB [Concomitant]
     Dosage: UNK UNK, QD
  2. DARVOCET [Concomitant]
     Indication: PAIN
     Dosage: UNK UNK, PRN
     Dates: start: 20080605
  3. TRAMADOL HCL [Concomitant]
     Dosage: 50 MG, UNK
  4. ZANTAC [Concomitant]
     Indication: DYSPEPSIA
     Dosage: 150 MG, BID
  5. ONDANSETRON [Concomitant]
     Dosage: 4 MG, UNK
  6. YAZ [Suspect]
     Indication: PRODUCT USED FOR UNKNOWN INDICATION
     Dosage: UNK UNK, UNK
     Route: 048
     Dates: start: 20071201, end: 20090701
  7. YASMIN [Suspect]
  8. TOPAMAX [Concomitant]
     Indication: MIGRAINE
     Dosage: 100 MG, HS
     Route: 048
  9. RELPAX [Concomitant]
     Indication: MIGRAINE
     Dosage: 40 MG, PRN
  10. FOLIC ACID [Concomitant]
     Dosage: 1 MG, QD
  11. RANITIDINE [Concomitant]
     Dosage: 150 MG, UNK
     Dates: start: 20080528

REACTIONS (2)
  - ABDOMINAL PAIN [None]
  - CHOLECYSTITIS CHRONIC [None]
